FAERS Safety Report 7937648-3 (Version None)
Quarter: 2011Q4

REPORT INFORMATION
  Report Type: 
  Country: None (occurrence: None)
  Receive Date: 20111123
  Receipt Date: 20111111
  Transmission Date: 20120403
  Serious: Yes (Hospitalization, Other)
  Sender: FDA-Public Use
  Company Number: PHHY2011MX63978

PATIENT
  Sex: Male

DRUGS (1)
  1. EXFORGE [Suspect]
     Indication: HYPERTENSION
     Dosage: 2 DF, (160/5 MG) DAILY

REACTIONS (4)
  - ESCHAR [None]
  - SPEECH DISORDER [None]
  - INFARCTION [None]
  - LOSS OF CONSCIOUSNESS [None]
